FAERS Safety Report 6266672-4 (Version None)
Quarter: 2009Q3

REPORT INFORMATION
  Report Type: 
  Country: None (occurrence: None)
  Receive Date: 20090710
  Receipt Date: 20090624
  Transmission Date: 20100115
  Serious: Yes (Hospitalization)
  Sender: FDA-Public Use
  Company Number: B0441232A

PATIENT
  Age: 4 Year
  Sex: Female

DRUGS (3)
  1. LAMOTRIGINE [Suspect]
     Indication: EPILEPSY
     Dosage: 10 MG /
     Dates: start: 20060823, end: 20060914
  2. VALPROIC ACID [Suspect]
     Dosage: 45 MG / PER DAY /
     Dates: start: 20030101
  3. CLONAZEPAM [Concomitant]

REACTIONS (5)
  - DRUG INTERACTION [None]
  - LYMPHADENOPATHY [None]
  - PSEUDOMONONUCLEOSIS [None]
  - RASH MACULO-PAPULAR [None]
  - SPLENOMEGALY [None]
